FAERS Safety Report 9117767 (Version 1)
Quarter: 2013Q1

REPORT INFORMATION
  Report Type: Spontaneous
  Country: US (occurrence: US)
  Receive Date: 20130225
  Receipt Date: 20130225
  Transmission Date: 20140127
  Serious: No
  Sender: FDA-Public Use
  Company Number: US-B.I. PHARMACEUTICALS,INC./RIDGEFIELD-2013-BI-04697BP

PATIENT
  Age: 69 Year
  Sex: Female
  Weight: 69 kg

DRUGS (1)
  1. AGGRENOX [Suspect]
     Indication: PROPHYLAXIS
     Dosage: STRENGTH: 25 MG / 200 MG; DAILY DOSE: 25 MG / 200 MG
     Route: 048
     Dates: start: 20130214, end: 20130217

REACTIONS (5)
  - Urticaria [Not Recovered/Not Resolved]
  - Lip swelling [Not Recovered/Not Resolved]
  - Eye swelling [Not Recovered/Not Resolved]
  - Nasal oedema [Not Recovered/Not Resolved]
  - Pruritus generalised [Not Recovered/Not Resolved]
